FAERS Safety Report 4829306-9 (Version None)
Quarter: 2005Q4

REPORT INFORMATION
  Report Type: 
  Country: None (occurrence: None)
  Receive Date: 20051028
  Receipt Date: 20050901
  Transmission Date: 20060501
  Serious: Yes (Death)
  Sender: FDA-Public Use
  Company Number: COT_0201_2005

PATIENT
  Age: 59 Year
  Sex: Male

DRUGS (1)
  1. VENTAVIS [Suspect]
     Dosage: 5 MCG VARIABLE IH
     Route: 055

REACTIONS (1)
  - RIGHT VENTRICULAR FAILURE [None]
